FAERS Safety Report 9338651 (Version 2)
Quarter: 2013Q3

REPORT INFORMATION
  Report Type: Report from Study
  Country: CA (occurrence: CA)
  Receive Date: 20130610
  Receipt Date: 20130725
  Transmission Date: 20140515
  Serious: Yes (Death)
  Sender: FDA-Public Use
  Company Number: PHHY2013CA058180

PATIENT
  Sex: Female

DRUGS (5)
  1. CLOZARIL [Suspect]
     Indication: DELUSIONAL DISORDER, UNSPECIFIED TYPE
     Dosage: UNK
     Route: 048
     Dates: start: 20090407
  2. CLOZARIL [Suspect]
     Dosage: 125 MG, UNK
     Route: 048
     Dates: start: 20090512
  3. GERAMET [Concomitant]
     Dosage: 100/25 (UNIT UNSPECIFIED) TID
     Route: 048
     Dates: start: 2009
  4. CLOZAPINE [Concomitant]
     Dosage: UNK UKN, UNK
  5. CIPRALEX [Concomitant]
     Dosage: 10 MG, UNK
     Dates: start: 2009

REACTIONS (4)
  - Cerebrovascular accident [Fatal]
  - Hypertension [Fatal]
  - Arteriosclerosis [Fatal]
  - Arrhythmia [Fatal]
